FAERS Safety Report 23506377 (Version 1)
Quarter: 2024Q1

REPORT INFORMATION
  Report Type: Spontaneous
  Country: NL (occurrence: NL)
  Receive Date: 20240209
  Receipt Date: 20240209
  Transmission Date: 20240410
  Serious: Yes (Hospitalization)
  Sender: FDA-Public Use
  Company Number: None

PATIENT
  Age: 73 Year
  Sex: Female
  Weight: 96 kg

DRUGS (8)
  1. PIOGLITAZONE [Suspect]
     Active Substance: PIOGLITAZONE
     Indication: Type 2 diabetes mellitus
     Dosage: 1X PER DAY 1 PIECE
     Dates: start: 20200101, end: 20231228
  2. CANDESARTAN [Concomitant]
     Active Substance: CANDESARTAN
     Dosage: TABLET, 16 MG (MILLIGRAM)
  3. EZETIMIBE [Concomitant]
     Active Substance: EZETIMIBE
     Dosage: TABLET, 10 MG (MILLIGRAM)
  4. OMEPRAZOLE [Concomitant]
     Active Substance: OMEPRAZOLE
     Dosage: GASTRO-RESISTANT CAPSULE, 20 MG (MILLIGRAM)
  5. GABAPENTIN [Concomitant]
     Active Substance: GABAPENTIN
     Dosage: TABLET, 600 MG (MILLIGRAM)
  6. AMLODIPINE [Concomitant]
     Active Substance: AMLODIPINE BESYLATE
     Dosage: TABLET, 10 MG (MILLIGRAM)
  7. METOPROLOL [Concomitant]
     Active Substance: METOPROLOL
     Dosage: MODIFIED-RELEASE TABLET, 50 MG (MILLIGRAM)
  8. GLIMEPIRIDE [Concomitant]
     Active Substance: GLIMEPIRIDE
     Dosage: TABLET, 6 MG (MILLIGRAM)

REACTIONS (1)
  - Spinal fracture [Recovering/Resolving]
